FAERS Safety Report 7817860-4 (Version None)
Quarter: 2011Q4

REPORT INFORMATION
  Report Type: 
  Country: None (occurrence: None)
  Receive Date: 20111017
  Receipt Date: 20111006
  Transmission Date: 20120403
  Serious: Yes (Hospitalization)
  Sender: FDA-Public Use
  Company Number: FR-MERCK-1109FRA00107

PATIENT
  Age: 53 Year
  Sex: Male
  Weight: 117 kg

DRUGS (13)
  1. BISOPROLOL FUMARATE AND HYDROCHLOROTHIAZIDE [Concomitant]
     Indication: CARDIOMYOPATHY
     Route: 065
     Dates: start: 20100326
  2. JANUVIA [Suspect]
     Indication: TYPE 2 DIABETES MELLITUS
     Route: 048
     Dates: start: 20100209, end: 20110504
  3. GLICLAZIDE [Concomitant]
     Indication: TYPE 2 DIABETES MELLITUS
     Route: 048
     Dates: start: 20100101, end: 20110504
  4. JANUMET [Concomitant]
     Indication: TYPE 2 DIABETES MELLITUS
     Route: 048
     Dates: start: 20110505, end: 20110630
  5. ASPIRIN LYSINE [Concomitant]
     Indication: CARDIOMYOPATHY
     Route: 065
     Dates: start: 20100326
  6. METFORMIN [Concomitant]
     Route: 048
     Dates: start: 20110701
  7. GLICLAZIDE [Concomitant]
     Route: 048
     Dates: start: 20110505, end: 20110630
  8. METFORMIN [Concomitant]
     Route: 048
     Dates: start: 20110505, end: 20110630
  9. IVABRADINE HYDROCHLORIDE [Concomitant]
     Indication: CARDIOMYOPATHY
     Route: 065
     Dates: start: 20100326
  10. METFORMIN [Concomitant]
     Indication: TYPE 2 DIABETES MELLITUS
     Route: 048
     Dates: end: 20110504
  11. JANUVIA [Suspect]
     Route: 048
     Dates: start: 20110701
  12. ENALAPRIL MALEATE AND LERCANIDIPINE HYDROCHLORIDE [Concomitant]
     Indication: CARDIOMYOPATHY
     Route: 065
     Dates: start: 20100326
  13. ROSUVASTATIN CALCIUM [Concomitant]
     Indication: CARDIOMYOPATHY
     Route: 065
     Dates: start: 20091112

REACTIONS (2)
  - METASTASES TO BONE [None]
  - LOWER LIMB FRACTURE [None]
